FAERS Safety Report 10152780 (Version 1)
Quarter: 2014Q2

REPORT INFORMATION
  Report Type: Spontaneous
  Country: US (occurrence: US)
  Receive Date: 20140505
  Receipt Date: 20140505
  Transmission Date: 20141212
  Serious: Yes (Hospitalization)
  Sender: FDA-Public Use
  Company Number: US-PFIZER INC-2014118988

PATIENT
  Age: 48 Year
  Sex: Female

DRUGS (4)
  1. XANAX [Suspect]
     Dosage: UNK
     Dates: start: 2011
  2. SOMA [Suspect]
     Dosage: UNK
     Dates: start: 2011
  3. ROXICODONE [Suspect]
     Dosage: UNK
     Dates: start: 2011
  4. OXYCONTIN [Suspect]
     Dosage: UNK
     Dates: start: 2011

REACTIONS (1)
  - Cardiovascular disorder [Unknown]
